FAERS Safety Report 4698297-6 (Version None)
Quarter: 2005Q2

REPORT INFORMATION
  Report Type: 
  Country: None (occurrence: None)
  Receive Date: 20050621
  Receipt Date: 20050606
  Transmission Date: 20051028
  Serious: Yes (Hospitalization)
  Sender: FDA-Public Use
  Company Number: 2005-0008013

PATIENT
  Age: 41 Year
  Sex: Male

DRUGS (5)
  1. TENOFOVIR DISOPROXIL FUMARATE (TENOFOVIR DISOPROXIL FUMARATE) [Suspect]
  2. ATAZANAVIR (ATAZANAVIR) [Concomitant]
  3. RITONAVIR (RITONAVIR) [Concomitant]
  4. STAVUDINE [Concomitant]
  5. LAMIVUDINE [Concomitant]

REACTIONS (3)
  - NEPHROPATHY TOXIC [None]
  - PNEUMOCYSTIS JIROVECI PNEUMONIA [None]
  - RENAL IMPAIRMENT [None]
